FAERS Safety Report 26177338 (Version 2)
Quarter: 2025Q4

REPORT INFORMATION
  Report Type: Report from Study
  Country: US (occurrence: US)
  Receive Date: 20251219
  Receipt Date: 20251226
  Transmission Date: 20260117
  Serious: Yes (Other)
  Sender: ROCHE
  Company Number: US-ROCHE-2704053

PATIENT
  Age: 90 Year
  Sex: Male

DRUGS (27)
  1. RITUXAN [Suspect]
     Active Substance: RITUXIMAB
     Indication: Product used for unknown indication
  2. LUCENTIS [Concomitant]
     Active Substance: RANIBIZUMAB
     Indication: Neovascular age-related macular degeneration
  3. PACERONE [Concomitant]
     Active Substance: AMIODARONE HYDROCHLORIDE
  4. BRIMONIDINE [Concomitant]
     Active Substance: BRIMONIDINE TARTRATE
     Dosage: 1 DROP EACH EYE 2 TIMES DAILY
  5. COREG [Concomitant]
     Active Substance: CARVEDILOL
     Route: 048
  6. VITAMIN D3 [Concomitant]
     Active Substance: CHOLECALCIFEROL
     Dosage: 4000 UNIT TABLET PO DAILY
     Route: 048
  7. COLACE [Concomitant]
     Active Substance: DOCUSATE SODIUM
     Route: 048
  8. XALATAN [Concomitant]
     Active Substance: LATANOPROST
     Dosage: 0.005% OPHTHALMIC SOLUTION EACH EYE NIGHTLY AT BEDTIME
  9. KEPPRA [Concomitant]
     Active Substance: LEVETIRACETAM
     Route: 048
  10. SYNTHROID [Concomitant]
     Active Substance: LEVOTHYROXINE SODIUM
     Route: 048
  11. LEVOTHROID [Concomitant]
     Active Substance: LEVOTHYROXINE SODIUM
     Route: 048
  12. COZAAR [Concomitant]
     Active Substance: LOSARTAN POTASSIUM
     Route: 048
  13. CRESTOR [Concomitant]
     Active Substance: ROSUVASTATIN CALCIUM
     Dosage: FORM OF ADMIN 10 MG TABLET
     Route: 048
  14. SENNOSIDES [Concomitant]
     Active Substance: SENNOSIDES
     Route: 048
  15. FLOMAX [Concomitant]
     Active Substance: TAMSULOSIN HYDROCHLORIDE
     Dosage: 0.4 MG CAPSULE NIGHTLY AT BEDTIME
  16. ZYLOPRIM [Concomitant]
     Active Substance: ALLOPURINOL
     Route: 048
  17. ZYLOPRIM [Concomitant]
     Active Substance: ALLOPURINOL
     Route: 048
  18. SULFUR [Concomitant]
     Active Substance: SULFUR
  19. VENCLEXTA [Concomitant]
     Active Substance: VENETOCLAX
     Indication: Chronic lymphocytic leukaemia
     Dosage: 20MG (2 10MG TABS) WK 1, 50MG WK2, 100MG WK 3, 200MG (2 100MG TABS) WK 4 DAILY,?STARTING PACK
     Dates: start: 20201019
  20. VENCLEXTA [Concomitant]
     Active Substance: VENETOCLAX
     Dosage: TAKE 100 MG (200 MG TOTAL) BY MOUTH ONLY. TAKE WITH FOOD
     Route: 048
  21. SENOKOT [Concomitant]
     Active Substance: SENNOSIDES
     Dosage: TAKEN 1 TABLET BY MOUTH 3 (THREE) TIMES A DAY AS NEEDED
     Route: 048
  22. PROCARDIA XI [NIFEDIPINE] [Concomitant]
     Dosage: TAKEN 1 CAPSULE (20 MG TOTAL) BY MOUTH DAILY
     Route: 048
  23. PRILOSEC [Concomitant]
     Active Substance: OMEPRAZOLE MAGNESIUM
     Dosage: TAKEN 1 CAPSULE (20 MG TOTAL) BY MOUTH DAILY
     Route: 048
  24. NITROSTAT [Concomitant]
     Active Substance: NITROGLYCERIN
     Dosage: PLACED 1 TABLET (0.4 MG TOTAL) UNDER THE TONGUE EVERY 5 (FIVE) MINUTES AS NEEDED FOR CHEST PAIN.
     Route: 060
  25. MAGNESIUM OXIDE [Concomitant]
     Active Substance: MAGNESIUM OXIDE
     Dosage: TAKEN 250 MG BY MOUTH DAILY
     Route: 048
  26. MINERALS\VITAMINS [Concomitant]
     Active Substance: MINERALS\VITAMINS
     Dosage: TAKEN 1 CAPSULE BY MOUTH 2 (TWO) TIMES A DAY.
     Route: 048
  27. ROSUVASTATIN [Concomitant]
     Active Substance: ROSUVASTATIN
     Dosage: TAKEN 20 MG BY MOUTH NIGHTLY AT BEDTIME
     Route: 048

REACTIONS (1)
  - Anaphylactic reaction [Unknown]

NARRATIVE: CASE EVENT DATE: 20200814
